FAERS Safety Report 24309188 (Version 3)
Quarter: 2024Q3

REPORT INFORMATION
  Report Type: Spontaneous
  Country: US (occurrence: US)
  Receive Date: 20240911
  Receipt Date: 20240930
  Transmission Date: 20241017
  Serious: Yes (Hospitalization, Other)
  Sender: FRESENIUS KABI
  Company Number: US-FreseniusKabi-FK202413465

PATIENT
  Age: 75 Year
  Sex: Female
  Weight: 59 kg

DRUGS (13)
  1. LEUCOVORIN CALCIUM [Suspect]
     Active Substance: LEUCOVORIN CALCIUM
     Dosage: FORM OF ADMINISTRATION-SOLUTION FOR INJECTION?ROUTE OF ADMIN: INTRAVENOUS DRIP
     Dates: start: 20240315
  2. LEUCOVORIN CALCIUM [Suspect]
     Active Substance: LEUCOVORIN CALCIUM
     Indication: Colorectal cancer
  3. FLUOROURACIL [Suspect]
     Active Substance: FLUOROURACIL
     Indication: Colorectal cancer
     Dosage: FORM OF ADMINISTRATION-SOLUTION FOR INFUSION ?ROUTE OF ADMIN: INTRAVENOUS BOLUS
     Dates: start: 20240315
  4. FLUOROURACIL [Suspect]
     Active Substance: FLUOROURACIL
     Dosage: FORM OF ADMINISTRATION-SOLUTION FOR INFUSION ?ROUTE OF ADMIN: INTRAVENOUS DRIP
     Dates: start: 20240315
  5. ENCORAFENIB [Suspect]
     Active Substance: ENCORAFENIB
     Indication: Colorectal cancer
     Dosage: FORM OF ADMINISTRATION CAPSULE?ROUTE OF ADMIN: ORAL
     Dates: start: 20240315
  6. IRINOTECAN HYDROCHLORIDE [Suspect]
     Active Substance: IRINOTECAN HYDROCHLORIDE
     Indication: Colorectal cancer
     Dosage: FORM OF ADMINISTRATION-SOLUTION FOR INFUSION?ROUTE OF ADMIN: INTRAVENOUS DRIP
     Dates: start: 20240315
  7. ELIQUIS [Suspect]
     Active Substance: APIXABAN
     Indication: Deep vein thrombosis
     Route: 048
     Dates: end: 20240522
  8. CETUXIMAB [Suspect]
     Active Substance: CETUXIMAB
     Indication: Colorectal cancer
     Dosage: FORM OF ADMINISTRATION-SOLUTION FOR INFUSION
     Route: 041
     Dates: start: 20240315
  9. GABAPENTIN [Concomitant]
     Active Substance: GABAPENTIN
     Indication: Pain
     Route: 048
     Dates: start: 20240307
  10. REMERON [Concomitant]
     Active Substance: MIRTAZAPINE
     Indication: Decreased appetite
     Route: 048
     Dates: start: 20240307
  11. PANTOPRAZOLE [Concomitant]
     Active Substance: PANTOPRAZOLE
     Indication: Gastrooesophageal reflux disease
     Route: 048
     Dates: start: 20240311
  12. MINOCYCLINE [Concomitant]
     Active Substance: MINOCYCLINE HYDROCHLORIDE
     Indication: Disturbance in attention
     Route: 048
     Dates: start: 20240315
  13. MIRALAX [Concomitant]
     Active Substance: POLYETHYLENE GLYCOL 3350
     Indication: Constipation
     Route: 048
     Dates: start: 20240422

REACTIONS (9)
  - Deep vein thrombosis [Recovered/Resolved]
  - Lactic acidosis [Recovered/Resolved]
  - Pleural effusion [Recovered/Resolved]
  - Failure to thrive [Recovered/Resolved]
  - Acute kidney injury [Recovered/Resolved]
  - Thrombocytopenia [Recovered/Resolved]
  - Haemorrhoids [Not Recovered/Not Resolved]
  - Back pain [Not Recovered/Not Resolved]
  - Gait disturbance [Unknown]

NARRATIVE: CASE EVENT DATE: 20240316
